FAERS Safety Report 16665496 (Version 1)
Quarter: 2019Q3

REPORT INFORMATION
  Report Type: Spontaneous
  Country: US (occurrence: US)
  Receive Date: 20190619
  Receipt Date: 20190619
  Transmission Date: 20191004
  Serious: Yes (Other)
  Sender: FDA-Public Use
  Company Number: None

PATIENT
  Age: 48 Year
  Sex: Female
  Weight: 101.6 kg

DRUGS (2)
  1. METHYLPHENIDATE 20MG [Suspect]
     Active Substance: METHYLPHENIDATE
     Indication: ATTENTION DEFICIT/HYPERACTIVITY DISORDER
     Dosage: ?          OTHER FREQUENCY:6X PER 24;?
     Route: 048
     Dates: start: 20190521
  2. METHYLPHENIDATE 20MG [Suspect]
     Active Substance: METHYLPHENIDATE

REACTIONS (4)
  - Psychomotor hyperactivity [None]
  - Product substitution issue [None]
  - Aggression [None]
  - Disturbance in attention [None]

NARRATIVE: CASE EVENT DATE: 20190521
